FAERS Safety Report 9257861 (Version 1)
Quarter: 2013Q1

REPORT INFORMATION
  Report Type: Spontaneous
  Country: US (occurrence: None)
  Receive Date: 20121212
  Receipt Date: 20121212
  Transmission Date: 20140127
  Serious: No
  Sender: FDA-Public Use
  Company Number: 1210USA006721

PATIENT
  Age: 57 Year
  Sex: Female
  Weight: 71.2 kg

DRUGS (3)
  1. PEGINTRON (PEGINTERFERON ALFA-2B)POWDER FOR INJECTION [Suspect]
     Indication: HEPATITIS C
     Dates: start: 20111118
  2. RIBAVIRIN (RIBAVIRIN) CAPSULE [Suspect]
     Indication: HEPATITIS C
     Dates: start: 20111118
  3. VICTRELIS (BOCEPREVIR) CAPSULE [Suspect]
     Indication: HEPATITIS C
     Dates: start: 20111217, end: 20120831

REACTIONS (1)
  - Weight decreased [None]
